FAERS Safety Report 13197692 (Version 7)
Quarter: 2017Q3

REPORT INFORMATION
  Report Type: Report from Study
  Country: US (occurrence: US)
  Receive Date: 20170208
  Receipt Date: 20170823
  Transmission Date: 20171127
  Serious: Yes (Other)
  Sender: FDA-Public Use
  Company Number: US-JNJFOC-20161129867

PATIENT
  Age: 81 Year
  Sex: Male

DRUGS (20)
  1. METOCLOPRAM [Concomitant]
     Active Substance: METOCLOPRAMIDE
  2. IMBRUVICA [Suspect]
     Active Substance: IBRUTINIB
     Indication: CHRONIC LYMPHOCYTIC LEUKAEMIA
     Route: 048
  3. COLACE [Concomitant]
     Active Substance: DOCUSATE SODIUM
  4. ZOCOR [Concomitant]
     Active Substance: SIMVASTATIN
  5. ASCORBIC ACID W/RETINOL/TOCOPHEROL [Concomitant]
  6. IMBRUVICA [Suspect]
     Active Substance: IBRUTINIB
     Indication: CHRONIC LYMPHOCYTIC LEUKAEMIA
     Route: 048
     Dates: start: 20161119
  7. CENTRUM [Concomitant]
     Active Substance: VITAMINS
  8. SINGULAIR [Concomitant]
     Active Substance: MONTELUKAST SODIUM
  9. IMBRUVICA [Suspect]
     Active Substance: IBRUTINIB
     Indication: CHRONIC LYMPHOCYTIC LEUKAEMIA
     Route: 048
     Dates: start: 20161217
  10. ALLOPURINOL. [Concomitant]
     Active Substance: ALLOPURINOL
  11. ATENOLOL. [Concomitant]
     Active Substance: ATENOLOL
  12. IMODIUM [Concomitant]
     Active Substance: LOPERAMIDE HYDROCHLORIDE
  13. DONEPEZIL. [Concomitant]
     Active Substance: DONEPEZIL
  14. BABY ASPIRIN [Concomitant]
     Active Substance: ASPIRIN
  15. CLARITIN [Concomitant]
     Active Substance: LORATADINE
  16. SINEMET [Concomitant]
     Active Substance: CARBIDOPA\LEVODOPA
  17. GAVISCON [Concomitant]
     Active Substance: ALUMINUM HYDROXIDE\MAGNESIUM CARBONATE
  18. VALACYCLOVIR [Concomitant]
     Active Substance: VALACYCLOVIR HYDROCHLORIDE
  19. PROTONIX [Concomitant]
     Active Substance: PANTOPRAZOLE SODIUM
  20. LANSOPRAZOLE. [Concomitant]
     Active Substance: LANSOPRAZOLE

REACTIONS (13)
  - Cardiomyopathy [Unknown]
  - Inappropriate schedule of drug administration [Not Recovered/Not Resolved]
  - Abdominal pain upper [Unknown]
  - Haemoglobin decreased [Not Recovered/Not Resolved]
  - Blood count abnormal [Recovering/Resolving]
  - Renal mass [Unknown]
  - Blood iron decreased [Unknown]
  - Chills [Unknown]
  - Faeces discoloured [Recovered/Resolved]
  - Diarrhoea [Unknown]
  - Aortic stenosis [Unknown]
  - Red blood cell count decreased [Not Recovered/Not Resolved]
  - Off label use [Not Recovered/Not Resolved]

NARRATIVE: CASE EVENT DATE: 2016
